FAERS Safety Report 7956236-6 (Version None)
Quarter: 2011Q4

REPORT INFORMATION
  Report Type: 
  Country: None (occurrence: None)
  Receive Date: 20111205
  Receipt Date: 20111122
  Transmission Date: 20120403
  Serious: Yes (Other)
  Sender: FDA-Public Use
  Company Number: BR-JNJFOC-20101208048

PATIENT
  Age: 47 Year
  Sex: Female

DRUGS (2)
  1. INFLIXIMAB, RECOMBINANT [Suspect]
     Indication: PRODUCT USED FOR UNKNOWN INDICATION
     Dosage: WEEK 0, 2, 6
     Route: 042
  2. DIPHENHYDRAMINE HCL [Concomitant]
     Indication: PREMEDICATION

REACTIONS (3)
  - CEREBROVASCULAR ACCIDENT [None]
  - HYPOTENSION [None]
  - HYPERTENSION [None]
